FAERS Safety Report 12796216 (Version 4)
Quarter: 2016Q4

REPORT INFORMATION
  Report Type: Report from Study
  Country: None (occurrence: US)
  Receive Date: 20160929
  Receipt Date: 20161202
  Transmission Date: 20170207
  Serious: Yes (Hospitalization, Other)
  Sender: FDA-Public Use
  Company Number: US-ABBVIE-16K-163-1739772-00

PATIENT
  Age: 65 Year
  Sex: Female

DRUGS (6)
  1. PREDNISONE. [Concomitant]
     Active Substance: PREDNISONE
     Indication: RHEUMATOID ARTHRITIS
  2. PRILOSEC [Concomitant]
     Active Substance: OMEPRAZOLE MAGNESIUM
     Indication: PRODUCT USED FOR UNKNOWN INDICATION
  3. HUMIRA [Suspect]
     Active Substance: ADALIMUMAB
     Indication: RHEUMATOID ARTHRITIS
     Route: 058
     Dates: start: 20160229, end: 20160815
  4. FOLIC ACID. [Concomitant]
     Active Substance: FOLIC ACID
     Indication: PRODUCT USED FOR UNKNOWN INDICATION
  5. METHOTREXATE. [Suspect]
     Active Substance: METHOTREXATE
     Indication: RHEUMATOID ARTHRITIS
     Route: 065
  6. METOPROLOL. [Concomitant]
     Active Substance: METOPROLOL
     Indication: PRODUCT USED FOR UNKNOWN INDICATION

REACTIONS (8)
  - Pulmonary mass [Not Recovered/Not Resolved]
  - Oral pain [Not Recovered/Not Resolved]
  - Pneumonia [Recovering/Resolving]
  - Lung hypoinflation [Not Recovered/Not Resolved]
  - Respiratory failure [Recovering/Resolving]
  - Diaphragmatic disorder [Not Recovered/Not Resolved]
  - Tooth fracture [Recovered/Resolved]
  - Atelectasis [Recovered/Resolved]

NARRATIVE: CASE EVENT DATE: 201608
